FAERS Safety Report 4407668-4 (Version None)
Quarter: 2004Q3

REPORT INFORMATION
  Report Type: 
  Country: None (occurrence: None)
  Receive Date: 20040721
  Receipt Date: 20040712
  Transmission Date: 20050211
  Serious: Yes (Other)
  Sender: FDA-Public Use
  Company Number: 2003-07-3408

PATIENT
  Age: 48 Year
  Sex: Male

DRUGS (4)
  1. RIBAVIRIN [Suspect]
     Indication: SEVERE ACUTE RESPIRATORY SYNDROME
     Dosage: 600 MG Q8H ORAL
     Route: 048
     Dates: start: 20030401, end: 20030404
  2. VIRAZOLE [Suspect]
     Indication: SEVERE ACUTE RESPIRATORY SYNDROME
     Dosage: 1 G Q6H INTRAVENOUS
     Route: 042
     Dates: start: 20040329, end: 20030401
  3. LEVOFLOXACIN [Concomitant]
  4. CEPHALEXIN [Concomitant]

REACTIONS (1)
  - HYPOMAGNESAEMIA [None]
